FAERS Safety Report 14481735 (Version 2)
Quarter: 2018Q1

REPORT INFORMATION
  Report Type: Report from Study
  Country: CO (occurrence: CO)
  Receive Date: 20180202
  Receipt Date: 20180322
  Transmission Date: 20180509
  Serious: Yes (Hospitalization, Other)
  Sender: FDA-Public Use
  Company Number: PHHY2018CO014761

PATIENT
  Age: 79 Year
  Sex: Female
  Weight: 62 kg

DRUGS (4)
  1. REVOLADE [Suspect]
     Active Substance: ELTROMBOPAG
     Indication: IMMUNE THROMBOCYTOPENIC PURPURA
     Dosage: 25 MG, TID
     Route: 048
     Dates: start: 20170906
  2. REVOLADE [Suspect]
     Active Substance: ELTROMBOPAG
     Dosage: 75 MG, QD
     Route: 048
  3. INSULIN GLARGINE [Concomitant]
     Active Substance: INSULIN GLARGINE
     Indication: DIABETES MELLITUS
     Dosage: 9 IU, QD
     Route: 051
  4. HUMALOG [Concomitant]
     Active Substance: INSULIN LISPRO
     Indication: DIABETES MELLITUS
     Dosage: 3 IU, Q12H
     Route: 051

REACTIONS (8)
  - Depressed mood [Unknown]
  - Epistaxis [Unknown]
  - Chills [Unknown]
  - Platelet disorder [Unknown]
  - Feeling abnormal [Unknown]
  - Headache [Unknown]
  - Platelet count decreased [Unknown]
  - Feeling hot [Unknown]

NARRATIVE: CASE EVENT DATE: 20180114
